FAERS Safety Report 4443103-8 (Version None)
Quarter: 2004Q3

REPORT INFORMATION
  Report Type: 
  Country: None (occurrence: None)
  Receive Date: 20040903
  Receipt Date: 20040628
  Transmission Date: 20050211
  Serious: Yes (Other)
  Sender: FDA-Public Use
  Company Number: 2004UW13366

PATIENT
  Age: 45 Year
  Sex: Male
  Weight: 87.9978 kg

DRUGS (4)
  1. CRESTOR [Suspect]
     Indication: BLOOD CHOLESTEROL INCREASED
     Dosage: 10 MG QD PO
     Route: 048
     Dates: start: 20040601, end: 20040616
  2. COUMADIN [Concomitant]
  3. ASPIRIN [Concomitant]
  4. RYTHMOL [Concomitant]

REACTIONS (4)
  - ASTHENIA [None]
  - INTERNATIONAL NORMALISED RATIO INCREASED [None]
  - NAUSEA [None]
  - PETECHIAE [None]
